FAERS Safety Report 6504514-X (Version None)
Quarter: 2009Q4

REPORT INFORMATION
  Report Type: 
  Country: None (occurrence: None)
  Receive Date: 20091215
  Receipt Date: 20091204
  Transmission Date: 20100525
  Serious: Yes (Death)
  Sender: FDA-Public Use
  Company Number: 2009AC000434

PATIENT
  Age: 80 Year
  Sex: Male

DRUGS (8)
  1. DIGOXIN [Suspect]
     Dosage: UNKNOWN; UNK; PO
     Route: 048
     Dates: start: 20060402
  2. VANCOMYCIN [Concomitant]
  3. LASIX [Concomitant]
  4. TOPROL-XL [Concomitant]
  5. CORTISONE [Concomitant]
  6. ADVAIR DISKUS 100/50 [Concomitant]
  7. LEVAQUIN [Concomitant]
  8. GLUCOTROL [Concomitant]

REACTIONS (26)
  - ADRENAL INSUFFICIENCY [None]
  - ANAEMIA [None]
  - ARTERIOSCLEROSIS [None]
  - BACTERAEMIA [None]
  - CARDIAC FAILURE CONGESTIVE [None]
  - CARDIOMYOPATHY [None]
  - CLOSTRIDIAL INFECTION [None]
  - DECREASED APPETITE [None]
  - DEHYDRATION [None]
  - DEPRESSION [None]
  - DIABETES MELLITUS [None]
  - ECONOMIC PROBLEM [None]
  - GOUT [None]
  - HYPERKALAEMIA [None]
  - HYPERLIPIDAEMIA [None]
  - HYPERTENSION [None]
  - HYPOTHYROIDISM [None]
  - ILEUS [None]
  - INJURY [None]
  - ISCHAEMIA [None]
  - PERIPHERAL VASCULAR DISORDER [None]
  - PSEUDOMONAS INFECTION [None]
  - SKIN LACERATION [None]
  - SURGERY [None]
  - URINARY TRACT INFECTION [None]
  - URINARY TRACT OBSTRUCTION [None]
